FAERS Safety Report 7949314-9 (Version None)
Quarter: 2011Q4

REPORT INFORMATION
  Report Type: 
  Country: None (occurrence: None)
  Receive Date: 20111123
  Receipt Date: 20111115
  Transmission Date: 20120403
  Serious: Yes (Hospitalization)
  Sender: FDA-Public Use
  Company Number: 2011HGS-002805

PATIENT
  Age: 36 Year
  Sex: Female
  Weight: 68.0396 kg

DRUGS (12)
  1. FENTANYL [Concomitant]
  2. BACLOFEN [Concomitant]
  3. FOLIC ACID [Concomitant]
  4. PLAQUENIL (HYDROXYCHLOROGUINE SULFATE) (HYDROXYCHLOROQUINE SULFATE) [Concomitant]
  5. VITAMIN D (ERGOCALCIFEROL) (ERGOCALCIFEROL) [Concomitant]
  6. TIGAN (TRIMETHOBENZAMIDE HYDROCHLORIDE) (TRIMETHOBENZAMIDE HYDROCHLORI [Concomitant]
  7. METHOTREXATE (METHOTREXATE) (METHOTREXATE) (METHOTREXATE) [Concomitant]
  8. LEVOTHYROXINE SODIUM [Concomitant]
  9. TOPIRAMATE (TOPRIAMATE) (TOPIRAMATE) [Concomitant]
  10. SAVELA (MILNACIPRAN) (MILNACIPRAN) [Concomitant]
  11. BENLYSTA [Suspect]
     Indication: SYSTEMIC LUPUS ERYTHEMATOSUS
     Dosage: 400 MG, 1 IN 28 D, INTRAVENOUS DRIP
     Route: 041
     Dates: start: 20110802
  12. OXYCODONE HCL [Concomitant]

REACTIONS (16)
  - DRUG INEFFECTIVE [None]
  - BLOOD POTASSIUM DECREASED [None]
  - CHEST PAIN [None]
  - VOMITING [None]
  - GASTRITIS [None]
  - DIZZINESS [None]
  - WEIGHT DECREASED [None]
  - ASTHENIA [None]
  - PAIN [None]
  - ABDOMINAL PAIN UPPER [None]
  - MALAISE [None]
  - FATIGUE [None]
  - DEHYDRATION [None]
  - GASTROINTESTINAL INFLAMMATION [None]
  - COLD SWEAT [None]
  - NAUSEA [None]
